FAERS Safety Report 9911193 (Version 2)
Quarter: 2014Q2

REPORT INFORMATION
  Report Type: Spontaneous
  Country: DE (occurrence: DE)
  Receive Date: 20140219
  Receipt Date: 20140502
  Transmission Date: 20141212
  Serious: Yes (Disabling)
  Sender: FDA-Public Use
  Company Number: DE-TAKEDA-2014TUS001163

PATIENT
  Age: 91 Year
  Sex: Female
  Weight: 58 kg

DRUGS (9)
  1. ADENURIC [Suspect]
     Indication: HYPERURICAEMIA
     Dosage: 80 MG, QD
     Route: 048
     Dates: start: 20140110, end: 20140124
  2. JURNISTA [Concomitant]
     Indication: POLYARTHRITIS
     Dosage: 8 MG, QD
     Dates: start: 20100219
  3. PANTOPRAZOLE [Concomitant]
     Indication: GASTRITIS
     Dosage: 20 MG, QD
     Dates: start: 20081208
  4. CLOPIDOGREL [Concomitant]
     Indication: CORONARY ARTERY DISEASE
     Dosage: 75 MG, QD
     Dates: start: 20100219, end: 20140110
  5. BISOPROLOL [Concomitant]
     Indication: CARDIAC FAILURE
     Dosage: 5 MG, QD
     Dates: start: 20080613
  6. PRITOR                             /01421801/ [Concomitant]
     Indication: CARDIAC FAILURE
     Dosage: 40 MG, QD
     Dates: start: 20100521, end: 20140110
  7. FUROSEMIDE [Concomitant]
     Indication: HYPERTENSION
     Dosage: 40 MG, QD
     Dates: start: 20080613
  8. ATARAX                             /00058401/ [Concomitant]
     Indication: PRURITUS
     Dosage: 25 MG, QD
     Dates: start: 20100528, end: 20140124
  9. TARDYFERON [Concomitant]
     Indication: IRON DEFICIENCY
     Dosage: 2 IN 1 WEEK
     Dates: start: 20100612

REACTIONS (1)
  - Blister [Not Recovered/Not Resolved]
